FAERS Safety Report 8531549 (Version 2)
Quarter: 2014Q2

REPORT INFORMATION
  Report Type: Spontaneous
  Country: US (occurrence: US)
  Receive Date: 20120426
  Receipt Date: 20140527
  Transmission Date: 20141212
  Serious: Yes (Other)
  Sender: FDA-Public Use
  Company Number: US-BAYER-2012-036558

PATIENT
  Age: 22 Year
  Sex: Female

DRUGS (1)
  1. MIRENA [Suspect]
     Indication: CONTRACEPTION
     Dosage: 20 MCG/24HR, CONT
     Route: 015
     Dates: start: 20120221, end: 20120530

REACTIONS (7)
  - Pelvic inflammatory disease [None]
  - Menorrhagia [None]
  - Menstruation irregular [None]
  - Dysmenorrhoea [None]
  - Device expulsion [None]
  - Injury [None]
  - Pain [None]
